FAERS Safety Report 10514869 (Version 1)
Quarter: 2014Q4

REPORT INFORMATION
  Report Type: Spontaneous
  Country: US (occurrence: US)
  Receive Date: 20141013
  Receipt Date: 20141013
  Transmission Date: 20150528
  Serious: Yes (Hospitalization)
  Sender: FDA-Public Use
  Company Number: US-GILEAD-2014-0117974

PATIENT
  Age: 52 Year
  Sex: Female

DRUGS (11)
  1. TORSEMIDE. [Concomitant]
     Active Substance: TORSEMIDE
  2. OXYCODONE [Concomitant]
     Active Substance: OXYCODONE
  3. VALIUM [Concomitant]
     Active Substance: DIAZEPAM
  4. SYMBICORT [Concomitant]
     Active Substance: BUDESONIDE\FORMOTEROL FUMARATE DIHYDRATE
  5. ALPHAGAN P [Concomitant]
     Active Substance: BRIMONIDINE TARTRATE
  6. LETAIRIS [Suspect]
     Active Substance: AMBRISENTAN
     Indication: PULMONARY ARTERIAL HYPERTENSION
     Dosage: 10 MG, QD
     Route: 065
     Dates: start: 20110830
  7. FISH OIL [Concomitant]
     Active Substance: FISH OIL
  8. LANTUS [Concomitant]
     Active Substance: INSULIN GLARGINE
  9. SILDENAFIL. [Concomitant]
     Active Substance: SILDENAFIL
  10. PERCOCET [Concomitant]
     Active Substance: ACETAMINOPHEN\OXYCODONE HYDROCHLORIDE
  11. VITAMIN D [Concomitant]
     Active Substance: CHOLECALCIFEROL

REACTIONS (1)
  - Chronic obstructive pulmonary disease [Unknown]
